FAERS Safety Report 9736032 (Version 1)
Quarter: 2013Q4

REPORT INFORMATION
  Report Type: Spontaneous
  Country: US (occurrence: None)
  Receive Date: 20131204
  Receipt Date: 20131204
  Transmission Date: 20140711
  Serious: Yes (Hospitalization)
  Sender: FDA-Public Use
  Company Number: 2010S1000518

PATIENT
  Age: 50 Year
  Sex: Female
  Weight: 55.79 kg

DRUGS (19)
  1. FLEET PHOSPHO-SODA [Suspect]
     Indication: COLONOSCOPY
     Dosage: 90 ML, 2 IN 24 HOURS, ORAL
     Route: 048
     Dates: start: 20070523, end: 20070523
  2. NAMENDA [Concomitant]
  3. NEURONTIN [Concomitant]
  4. TRILEPTAL [Concomitant]
  5. PROVIGIL [Concomitant]
  6. RITALIN [Concomitant]
  7. DITROPAN [Concomitant]
  8. BACLOFEN [Concomitant]
  9. MIRAPEX [Concomitant]
  10. LEXAPRO [Concomitant]
  11. CELLCEPT [Concomitant]
  12. ARICEPT [Concomitant]
  13. AMBIEN [Concomitant]
  14. LISINOPRIL [Concomitant]
  15. DARVOCET [Concomitant]
  16. CLIMARA [Concomitant]
  17. PHENERGAN (PROMETHAZINE) [Concomitant]
  18. SOLU-MEDROL [Concomitant]
  19. COPAXONE [Concomitant]

REACTIONS (11)
  - Diverticulum [None]
  - Haemorrhoids [None]
  - Disorientation [None]
  - Confusional state [None]
  - Multiple sclerosis relapse [None]
  - Hyponatraemia [None]
  - Renal tubular necrosis [None]
  - Hypovolaemia [None]
  - Mobility decreased [None]
  - Substance-induced psychotic disorder [None]
  - Renal failure acute [None]
